FAERS Safety Report 16175501 (Version 2)
Quarter: 2019Q2

REPORT INFORMATION
  Report Type: Report from Study
  Country: US (occurrence: US)
  Receive Date: 20190409
  Receipt Date: 20190417
  Transmission Date: 20190711
  Serious: Yes (Life-Threatening)
  Sender: FDA-Public Use
  Company Number: US-AMGEN-USACT2019054833

PATIENT
  Age: 49 Year
  Sex: Male
  Weight: 93.1 kg

DRUGS (12)
  1. PEG-L-ASPARAGINASE [Suspect]
     Active Substance: PEGASPARGASE
     Indication: B PRECURSOR TYPE ACUTE LEUKAEMIA
     Dosage: 2000 INTERNATIONAL UNIT/M2
     Route: 065
  2. RITUXIMAB. [Suspect]
     Active Substance: RITUXIMAB
     Indication: B PRECURSOR TYPE ACUTE LEUKAEMIA
     Dosage: 375 MILLIGRAM/SQ. METER
     Route: 042
  3. DAUNORUBICIN [Suspect]
     Active Substance: DAUNORUBICIN
     Indication: B PRECURSOR TYPE ACUTE LEUKAEMIA
     Dosage: 25 MILLIGRAM/SQ. METER
     Route: 042
  4. HYDROCORTISONE. [Suspect]
     Active Substance: HYDROCORTISONE
     Indication: B PRECURSOR TYPE ACUTE LEUKAEMIA
     Dosage: 50 MILLIGRAM
     Route: 037
  5. ETOPOSIDE. [Suspect]
     Active Substance: ETOPOSIDE
     Indication: B PRECURSOR TYPE ACUTE LEUKAEMIA
     Dosage: 100 MILLIGRAM/SQ. METER
     Route: 042
  6. DEXAMETHASONE. [Suspect]
     Active Substance: DEXAMETHASONE
     Indication: B PRECURSOR TYPE ACUTE LEUKAEMIA
     Dosage: 10 MILLIGRAM/SQ. METER
     Route: 065
  7. BLINATUMOMAB [Suspect]
     Active Substance: BLINATUMOMAB
     Indication: B PRECURSOR TYPE ACUTE LEUKAEMIA
     Dosage: 28 MICROGRAM, QD
     Route: 042
     Dates: start: 20181126, end: 20190204
  8. METHOTREXATE. [Suspect]
     Active Substance: METHOTREXATE
     Indication: B PRECURSOR TYPE ACUTE LEUKAEMIA
     Dosage: 12.5 MILLIGRAM
     Route: 037
  9. VINCRISTINE SULFATE. [Suspect]
     Active Substance: VINCRISTINE SULFATE
     Indication: B PRECURSOR TYPE ACUTE LEUKAEMIA
     Dosage: 1.4 MILLIGRAM/SQ. METER
     Route: 042
  10. CYTARABINE. [Suspect]
     Active Substance: CYTARABINE
     Indication: B PRECURSOR TYPE ACUTE LEUKAEMIA
     Dosage: 75 MILLIGRAM/SQ. METER
     Route: 065
  11. CYCLOPHOSPHAMIDE. [Suspect]
     Active Substance: CYCLOPHOSPHAMIDE
     Indication: B PRECURSOR TYPE ACUTE LEUKAEMIA
     Dosage: 650 MILLIGRAM/SQ. METER
     Route: 042
  12. 6-MERCAPTOPURINE MONOHYDRATE [Suspect]
     Active Substance: MERCAPTOPURINE
     Indication: B PRECURSOR TYPE ACUTE LEUKAEMIA
     Dosage: 60 MILLIGRAM/SQ. METER
     Route: 048

REACTIONS (1)
  - Hypertriglyceridaemia [Unknown]

NARRATIVE: CASE EVENT DATE: 20190321
